FAERS Safety Report 5947104-X (Version None)
Quarter: 2008Q4

REPORT INFORMATION
  Report Type: 
  Country: None (occurrence: None)
  Receive Date: 20081110
  Receipt Date: 20081105
  Transmission Date: 20090506
  Serious: Yes (Life-Threatening, Hospitalization)
  Sender: FDA-Public Use
  Company Number: BE-SANOFI-SYNTHELABO-F01200801695

PATIENT
  Sex: Female

DRUGS (4)
  1. FLUOROURACIL [Suspect]
     Route: 041
     Dates: start: 20060606, end: 20060606
  2. LEUCOVORIN CALCIUM [Suspect]
     Route: 041
     Dates: start: 20060606, end: 20060606
  3. ELOXATIN [Suspect]
     Indication: COLORECTAL CANCER
     Route: 033
     Dates: start: 20060606, end: 20060606
  4. ELOXATIN [Suspect]
     Indication: METASTASES TO PERITONEUM
     Route: 033
     Dates: start: 20060606, end: 20060606

REACTIONS (2)
  - INTESTINAL FISTULA [None]
  - PERITONITIS [None]
